FAERS Safety Report 7542929-1 (Version None)
Quarter: 2011Q2

REPORT INFORMATION
  Report Type: 
  Country: None (occurrence: None)
  Receive Date: 20110524
  Receipt Date: 20110307
  Transmission Date: 20111010
  Serious: No
  Sender: FDA-Public Use
  Company Number: 024886

PATIENT
  Sex: Female

DRUGS (1)
  1. CIMZIA [Suspect]
     Indication: CROHN'S DISEASE
     Dosage: (SUBCUTANEOUS)
     Route: 058
     Dates: start: 20100514, end: 20100101

REACTIONS (6)
  - INFECTION [None]
  - NASOPHARYNGITIS [None]
  - DECREASED APPETITE [None]
  - CROHN'S DISEASE [None]
  - ARTHRITIS [None]
  - FAECAL INCONTINENCE [None]
